FAERS Safety Report 9805935 (Version 1)
Quarter: 2014Q1

REPORT INFORMATION
  Report Type: Spontaneous
  Country: BR (occurrence: None)
  Receive Date: 20140107
  Receipt Date: 20140107
  Transmission Date: 20141002
  Serious: Yes (Hospitalization)
  Sender: FDA-Public Use
  Company Number: 2013P1022336

PATIENT
  Age: 62 Year
  Sex: Male

DRUGS (4)
  1. PREDNISONE [Suspect]
     Indication: RENAL TRANSPLANT
     Dates: start: 20081120
  2. CYCLOSPORIN [Suspect]
     Indication: RENAL TRANSPLANT
     Route: 048
     Dates: start: 20110204
  3. CYCLOSPORIN [Suspect]
     Indication: RENAL TRANSPLANT
     Route: 048
     Dates: start: 20110204
  4. CELLCEPT [Suspect]
     Indication: RENAL TRANSPLANT
     Dates: start: 20110309, end: 20131010

REACTIONS (11)
  - Skin lesion [None]
  - Seborrhoeic keratosis [None]
  - Malignant melanoma [None]
  - VIIth nerve paralysis [None]
  - Infection [None]
  - Malignant neoplasm progression [None]
  - Tracheal disorder [None]
  - Infarction [None]
  - Ulcer haemorrhage [None]
  - Inflammation [None]
  - Metastasis [None]
